FAERS Safety Report 12865751 (Version 2)
Quarter: 2016Q4

REPORT INFORMATION
  Report Type: Spontaneous
  Country: US (occurrence: US)
  Receive Date: 20161020
  Receipt Date: 20161130
  Transmission Date: 20170207
  Serious: No
  Sender: FDA-Public Use
  Company Number: US-PFIZER INC-2016460633

PATIENT
  Age: 30 Year
  Sex: Female

DRUGS (11)
  1. LIDEX [Concomitant]
     Active Substance: FLUOCINONIDE
     Dosage: 1 DF, 3X/DAY (# 30G)
     Route: 061
  2. LYRICA [Suspect]
     Active Substance: PREGABALIN
     Indication: SYNOVITIS
  3. LOVENOX [Concomitant]
     Active Substance: ENOXAPARIN SODIUM
     Dosage: 40 MG, DAILY (40MG/0.4ML)
     Route: 058
  4. CITALOPRAM [Concomitant]
     Active Substance: CITALOPRAM HYDROBROMIDE
     Dosage: UNK
  5. TORADOL [Concomitant]
     Active Substance: KETOROLAC TROMETHAMINE
     Indication: PAIN
  6. DICLOFENAC POTASSIUM. [Concomitant]
     Active Substance: DICLOFENAC POTASSIUM
     Indication: PAIN
     Dosage: 50 MG, AS NEEDED (TID, PRN WITH FOOD)
     Route: 048
  7. DILAUDID [Concomitant]
     Active Substance: HYDROMORPHONE HYDROCHLORIDE
     Indication: PAIN
  8. LYRICA [Suspect]
     Active Substance: PREGABALIN
     Indication: COMPLEX REGIONAL PAIN SYNDROME
     Dosage: 150 MG, 2X/DAY
     Route: 048
  9. LYRICA [Suspect]
     Active Substance: PREGABALIN
     Indication: TENOSYNOVITIS
  10. LYRICA [Suspect]
     Active Substance: PREGABALIN
     Indication: JOINT INJURY
  11. IBUPROFEN. [Concomitant]
     Active Substance: IBUPROFEN
     Dosage: 800 MG, 3X/DAY (WITH FOOD OR MILK)
     Route: 048

REACTIONS (8)
  - Pain [Recovering/Resolving]
  - Gait disturbance [Unknown]
  - Paraesthesia [Unknown]
  - Swelling [Unknown]
  - Pulse abnormal [Unknown]
  - Headache [Unknown]
  - Dysaesthesia [Unknown]
  - Arthralgia [Unknown]
